FAERS Safety Report 8269977-0 (Version None)
Quarter: 2012Q2

REPORT INFORMATION
  Report Type: 
  Country: None (occurrence: None)
  Receive Date: 20120410
  Receipt Date: 20120329
  Transmission Date: 20120825
  Serious: Yes (Other)
  Sender: FDA-Public Use
  Company Number: US-JNJFOC-20120314730

PATIENT
  Sex: Male
  Weight: 112.49 kg

DRUGS (9)
  1. DURAGESIC-100 [Suspect]
     Route: 062
     Dates: start: 20100101
  2. DURAGESIC-100 [Suspect]
     Route: 062
     Dates: start: 20090101, end: 20100101
  3. MORPHINE [Concomitant]
     Indication: PAIN
     Route: 048
     Dates: start: 20050101
  4. DURAGESIC-100 [Suspect]
     Indication: PAIN
     Route: 062
     Dates: start: 20070101, end: 20080101
  5. FENTANYL TRASNSDERMAL SYSTEM [Suspect]
     Indication: PAIN
     Route: 062
     Dates: start: 20080101, end: 20090101
  6. DURAGESIC-100 [Suspect]
     Route: 062
     Dates: start: 20090101, end: 20090101
  7. VIMPAT [Suspect]
     Indication: CONVULSION
     Route: 048
     Dates: start: 20110101
  8. MORPHINE [Concomitant]
     Route: 048
     Dates: start: 20050101
  9. OXCARBAZEPINE [Concomitant]
     Indication: CONVULSION
     Route: 048

REACTIONS (8)
  - DRUG INEFFECTIVE [None]
  - PRODUCT QUALITY ISSUE [None]
  - MUSCLE TWITCHING [None]
  - WRONG TECHNIQUE IN DRUG USAGE PROCESS [None]
  - CONVULSION [None]
  - PAIN [None]
  - PRODUCT SUBSTITUTION ISSUE [None]
  - INSOMNIA [None]
